FAERS Safety Report 20790041 (Version 3)
Quarter: 2022Q2

REPORT INFORMATION
  Report Type: Spontaneous
  Country: US (occurrence: US)
  Receive Date: 20220505
  Receipt Date: 20220518
  Transmission Date: 20220720
  Serious: No
  Sender: FDA-Public Use
  Company Number: US-PFIZER INC-202200635232

PATIENT
  Age: 68 Year
  Sex: Female

DRUGS (2)
  1. IBRANCE [Suspect]
     Active Substance: PALBOCICLIB
     Dosage: UNK
     Dates: start: 20220425
  2. IRON [Suspect]
     Active Substance: IRON
     Dosage: UNK

REACTIONS (5)
  - Faeces discoloured [Unknown]
  - Dizziness [Unknown]
  - Insomnia [Unknown]
  - Rash macular [Unknown]
  - Rash pruritic [Unknown]
